FAERS Safety Report 5457361-4 (Version None)
Quarter: 2007Q3

REPORT INFORMATION
  Report Type: 
  Country: None (occurrence: None)
  Receive Date: 20070918
  Receipt Date: 20070906
  Transmission Date: 20080115
  Serious: Yes (Other)
  Sender: FDA-Public Use
  Company Number: US-PFIZER INC-2007065454

PATIENT
  Sex: Male
  Weight: 75.9 kg

DRUGS (2)
  1. CHANTIX [Suspect]
     Indication: SMOKING CESSATION THERAPY
     Dates: start: 20070726, end: 20070101
  2. AMBIEN [Concomitant]
     Indication: INSOMNIA

REACTIONS (8)
  - AGITATION [None]
  - DAYDREAMING [None]
  - FATIGUE [None]
  - FEELING ABNORMAL [None]
  - FEELING COLD [None]
  - HYPOTENSION [None]
  - LOGORRHOEA [None]
  - NERVOUSNESS [None]
